FAERS Safety Report 10037671 (Version 1)
Quarter: 2014Q1

REPORT INFORMATION
  Report Type: Spontaneous
  Country: US (occurrence: US)
  Receive Date: 20140326
  Receipt Date: 20140326
  Transmission Date: 20141002
  Serious: No
  Sender: FDA-Public Use
  Company Number: US-PFIZER INC-2014083489

PATIENT
  Age: 74 Year
  Sex: Male
  Weight: 60.77 kg

DRUGS (1)
  1. LYRICA [Suspect]
     Indication: NEUROPATHY PERIPHERAL
     Dosage: 50 MG, 1X/DAY
     Dates: start: 201403

REACTIONS (4)
  - Dizziness [Unknown]
  - Somnolence [Unknown]
  - Euphoric mood [Unknown]
  - Feeling abnormal [Unknown]
